FAERS Safety Report 17967690 (Version 3)
Quarter: 2020Q3

REPORT INFORMATION
  Report Type: Spontaneous
  Country: US (occurrence: US)
  Receive Date: 20200701
  Receipt Date: 20200803
  Transmission Date: 20201103
  Serious: No
  Sender: FDA-Public Use
  Company Number: US-PFIZER INC-2020252319

PATIENT
  Age: 84 Year
  Sex: Male

DRUGS (2)
  1. KEYTRUDA [Concomitant]
     Active Substance: PEMBROLIZUMAB
     Dosage: UNK
  2. INLYTA [Suspect]
     Active Substance: AXITINIB
     Dosage: 5 MG
     Dates: start: 20190725

REACTIONS (8)
  - Dysphonia [Not Recovered/Not Resolved]
  - Gastrointestinal pain [Unknown]
  - Laryngitis [Unknown]
  - Fatigue [Unknown]
  - Pruritus [Unknown]
  - Blood pressure increased [Unknown]
  - Diarrhoea [Unknown]
  - Blood creatinine increased [Unknown]
